FAERS Safety Report 9056259 (Version 1)
Quarter: 2013Q1

REPORT INFORMATION
  Report Type: Spontaneous
  Country: US (occurrence: US)
  Receive Date: 20130205
  Receipt Date: 20130205
  Transmission Date: 20140127
  Serious: No
  Sender: FDA-Public Use
  Company Number: US-BAYER-2013-011302

PATIENT
  Age: 2 Year
  Sex: Female
  Weight: 15.87 kg

DRUGS (1)
  1. ALEVE CAPLET/TABLET,MIDOL EXTENDED RELIEF CAPLET [Suspect]
     Dosage: QUARTER A CAPLET, ONCE
     Route: 048
     Dates: start: 20130116, end: 20130116

REACTIONS (1)
  - Accidental exposure to product by child [None]
